FAERS Safety Report 6244232-9 (Version None)
Quarter: 2009Q2

REPORT INFORMATION
  Report Type: 
  Country: None (occurrence: None)
  Receive Date: 20090625
  Receipt Date: 20090616
  Transmission Date: 20091009
  Serious: Yes (Death, Life-Threatening, Hospitalization)
  Sender: FDA-Public Use
  Company Number: EG-WYE-H09784709

PATIENT
  Age: 51 Year
  Sex: Male

DRUGS (4)
  1. SIROLIMUS [Suspect]
     Indication: PROPHYLAXIS AGAINST TRANSPLANT REJECTION
     Dosage: 3 MG/DAY INITIAL DOSE
     Route: 048
     Dates: start: 20090428
  2. SIROLIMUS [Suspect]
     Route: 048
     Dates: start: 20090101
  3. MYCOPHENOLATE MOFETIL [Concomitant]
     Indication: PROPHYLAXIS AGAINST TRANSPLANT REJECTION
     Dosage: NOT PROVIDED
     Dates: end: 20090401
  4. CYCLOSPORINE [Concomitant]
     Indication: PROPHYLAXIS AGAINST TRANSPLANT REJECTION
     Dosage: NOT PROVIDED
     Dates: end: 20090401

REACTIONS (1)
  - PNEUMONIA ASPIRATION [None]
